FAERS Safety Report 14136282 (Version 3)
Quarter: 2018Q1

REPORT INFORMATION
  Report Type: Report from Study
  Country: US (occurrence: US)
  Receive Date: 20171027
  Receipt Date: 20180116
  Transmission Date: 20180508
  Serious: Yes (Other)
  Sender: FDA-Public Use
  Company Number: US-AMGEN-USASL2017154356

PATIENT
  Age: 78 Year
  Sex: Female

DRUGS (3)
  1. REPATHA [Suspect]
     Active Substance: EVOLOCUMAB
     Indication: BLOOD CHOLESTEROL INCREASED
     Dosage: 140 MG, QMO
     Route: 065
  2. REPATHA [Suspect]
     Active Substance: EVOLOCUMAB
     Indication: HYPERCHOLESTEROLAEMIA
  3. REPATHA [Suspect]
     Active Substance: EVOLOCUMAB
     Indication: BLOOD CHOLESTEROL INCREASED
     Dosage: 140 MG, Q2WK (TWICE MONTHLY)
     Route: 065

REACTIONS (10)
  - Rhinorrhoea [Recovered/Resolved]
  - Peripheral coldness [Unknown]
  - Dyspnoea [Recovered/Resolved]
  - Muscle spasms [Unknown]
  - Rash [Unknown]
  - Nausea [Recovered/Resolved]
  - Off label use [Unknown]
  - Cardiovascular disorder [Unknown]
  - Insomnia [Unknown]
  - Injection site rash [Unknown]

NARRATIVE: CASE EVENT DATE: 201711
